FAERS Safety Report 9617624 (Version 1)
Quarter: 2013Q4

REPORT INFORMATION
  Report Type: Spontaneous
  Country: US (occurrence: US)
  Receive Date: 20131011
  Receipt Date: 20131011
  Transmission Date: 20140711
  Serious: Yes (Other)
  Sender: FDA-Public Use
  Company Number: US-BAYER-2013-121406

PATIENT
  Age: 56 Year
  Sex: Female
  Weight: 82 kg

DRUGS (3)
  1. NEO-SYNEPHRINE NIGHTTIME 12-HOUR SPRAY [Suspect]
     Indication: SINUS CONGESTION
     Dosage: 1-2DF, QD
     Route: 045
  2. NEO-SYNEPHRINE COLD + SINUS MILD STRENGTH [Suspect]
     Indication: SINUS CONGESTION
     Route: 045
  3. NEO-SYNEPHRINE COLD + SINUS REGULAR STRENGTH [Suspect]

REACTIONS (2)
  - Drug dependence [Not Recovered/Not Resolved]
  - Drug ineffective [None]
